FAERS Safety Report 6856219-3 (Version None)
Quarter: 2010Q2

REPORT INFORMATION
  Report Type: 
  Country: None (occurrence: None)
  Receive Date: 20100629
  Receipt Date: 20100518
  Transmission Date: 20101027
  Serious: No
  Sender: FDA-Public Use
  Company Number: US-WYE-H15327610

PATIENT

DRUGS (1)
  1. PRISTIQ [Suspect]
     Indication: MAJOR DEPRESSION

REACTIONS (2)
  - ANXIETY [None]
  - PANIC ATTACK [None]
